FAERS Safety Report 9491024 (Version 2)
Quarter: 2013Q3

REPORT INFORMATION
  Report Type: Spontaneous
  Country: US (occurrence: US)
  Receive Date: 20130830
  Receipt Date: 20130913
  Transmission Date: 20140515
  Serious: No
  Sender: FDA-Public Use
  Company Number: US-PFIZER INC-2013248447

PATIENT
  Age: 61 Year
  Sex: Female
  Weight: 99.77 kg

DRUGS (1)
  1. ALAVERT D-12 HOUR ALLERGY + SINUS [Suspect]
     Indication: HYPERSENSITIVITY
     Dosage: ONE ^PROLONGED-RELEASE TABLET^, ONCE A DAY
     Route: 048
     Dates: start: 20130821, end: 20130823

REACTIONS (2)
  - Feeling jittery [Unknown]
  - Malaise [Unknown]
